FAERS Safety Report 5474743-5 (Version None)
Quarter: 2007Q4

REPORT INFORMATION
  Report Type: 
  Country: None (occurrence: None)
  Receive Date: 20071002
  Receipt Date: 20070924
  Transmission Date: 20080405
  Serious: Yes (Life-Threatening, Hospitalization)
  Sender: FDA-Public Use
  Company Number: A0643387A

PATIENT
  Age: 54 Year
  Sex: Male
  Weight: 113.6 kg

DRUGS (6)
  1. DEXEDRINE [Suspect]
     Indication: ATTENTION DEFICIT/HYPERACTIVITY DISORDER
     Dosage: 70MG PER DAY
     Route: 048
     Dates: start: 19920101
  2. PROVIGIL [Suspect]
     Dosage: 400MG PER DAY
     Route: 048
     Dates: start: 20061001, end: 20070701
  3. CYMBALTA [Concomitant]
  4. GABAPENTIN [Concomitant]
  5. VYTORIN [Concomitant]
  6. MINOCYCLINE HCL [Concomitant]

REACTIONS (26)
  - AGGRESSION [None]
  - AGITATION [None]
  - BLOOD PRESSURE INCREASED [None]
  - CARDIAC DISORDER [None]
  - CARDIAC FAILURE CONGESTIVE [None]
  - CARDIOGENIC SHOCK [None]
  - COMA [None]
  - CONFUSIONAL STATE [None]
  - CORONARY ARTERY DISEASE [None]
  - DIZZINESS [None]
  - EJECTION FRACTION DECREASED [None]
  - ENCEPHALOPATHY [None]
  - FALL [None]
  - HEART RATE INCREASED [None]
  - HYPOTENSION [None]
  - INFLUENZA LIKE ILLNESS [None]
  - ISCHAEMIC CARDIOMYOPATHY [None]
  - MYOCARDIAL INFARCTION [None]
  - NARCOLEPSY [None]
  - PAIN [None]
  - PAIN IN JAW [None]
  - PULMONARY HYPERTENSION [None]
  - RENAL FAILURE [None]
  - RESPIRATORY FAILURE [None]
  - SPEECH DISORDER [None]
  - VOMITING [None]
